FAERS Safety Report 7398778-0 (Version None)
Quarter: 2011Q2

REPORT INFORMATION
  Report Type: 
  Country: None (occurrence: None)
  Receive Date: 20110401
  Receipt Date: 20110401
  Transmission Date: 20111010
  Serious: Yes (Hospitalization)
  Sender: FDA-Public Use
  Company Number: None

PATIENT
  Age: 64 Year
  Sex: Male
  Weight: 91 kg

DRUGS (3)
  1. CLOPIDOGREL [Suspect]
     Indication: CARDIOVASCULAR DISORDER
     Dosage: 75 MG EVERY DAY PO
     Route: 048
     Dates: start: 20100929, end: 20101021
  2. CLOPIDOGREL [Suspect]
     Indication: SURGERY
     Dosage: 75 MG EVERY DAY PO
     Route: 048
     Dates: start: 20100929, end: 20101021
  3. CLOPIDOGREL [Suspect]
     Indication: STENT PLACEMENT
     Dosage: 75 MG EVERY DAY PO
     Route: 048
     Dates: start: 20100929, end: 20101021

REACTIONS (1)
  - ANAPHYLACTIC REACTION [None]
